FAERS Safety Report 19209889 (Version 3)
Quarter: 2021Q3

REPORT INFORMATION
  Report Type: Spontaneous
  Country: US (occurrence: US)
  Receive Date: 20210504
  Receipt Date: 20210706
  Transmission Date: 20211014
  Serious: No
  Sender: FDA-Public Use
  Company Number: US-TEVA-2021-US-1905174

PATIENT
  Age: 78 Year
  Sex: Female

DRUGS (1)
  1. NEFAZODONE HYDROCHLORIDE. [Suspect]
     Active Substance: NEFAZODONE HYDROCHLORIDE
     Indication: DEPRESSION
     Route: 065
     Dates: start: 1995, end: 202012

REACTIONS (10)
  - Nightmare [Not Recovered/Not Resolved]
  - Withdrawal syndrome [Not Recovered/Not Resolved]
  - Decreased appetite [Not Recovered/Not Resolved]
  - Feeling guilty [Not Recovered/Not Resolved]
  - Rhinorrhoea [Not Recovered/Not Resolved]
  - Asthenia [Not Recovered/Not Resolved]
  - Visual impairment [Not Recovered/Not Resolved]
  - Speech disorder [Not Recovered/Not Resolved]
  - Feeling abnormal [Not Recovered/Not Resolved]
  - Tongue disorder [Not Recovered/Not Resolved]

NARRATIVE: CASE EVENT DATE: 2021
